FAERS Safety Report 8178492-4 (Version None)
Quarter: 2012Q1

REPORT INFORMATION
  Report Type: 
  Country: None (occurrence: None)
  Receive Date: 20120301
  Receipt Date: 20120223
  Transmission Date: 20120608
  Serious: Yes (Hospitalization)
  Sender: FDA-Public Use
  Company Number: JP-VERTEX PHARMACEUTICALS INC.-AE-2012-002815

PATIENT
  Age: 40 Year
  Sex: Male

DRUGS (6)
  1. TELAVIC (TELAPREVIR) [Suspect]
     Indication: HEPATITIS C
     Route: 048
     Dates: start: 20111228, end: 20120129
  2. TELAVIC (TELAPREVIR) [Suspect]
     Route: 048
     Dates: start: 20120130
  3. RIBAVIRIN [Concomitant]
     Route: 048
     Dates: start: 20120125
  4. PEG-INTRON [Concomitant]
     Indication: HEPATITIS C
     Route: 058
     Dates: start: 20111228
  5. LOXONIN [Concomitant]
  6. RIBAVIRIN [Concomitant]
     Indication: HEPATITIS C
     Route: 048
     Dates: start: 20111228, end: 20120124

REACTIONS (7)
  - STOMATITIS [None]
  - SEBORRHOEIC DERMATITIS [None]
  - ECZEMA [None]
  - PYREXIA [None]
  - NAUSEA [None]
  - DECREASED APPETITE [None]
  - DIARRHOEA [None]
